FAERS Safety Report 16692314 (Version 13)
Quarter: 2024Q2

REPORT INFORMATION
  Report Type: Report from Study
  Country: CA (occurrence: CA)
  Receive Date: 20190812
  Receipt Date: 20240611
  Transmission Date: 20240716
  Serious: Yes (Hospitalization, Other)
  Sender: FDA-Public Use
  Company Number: CA-TAKEDA-2018TUS035910

PATIENT
  Age: 54 Year
  Sex: Female

DRUGS (20)
  1. VEDOLIZUMAB [Suspect]
     Active Substance: VEDOLIZUMAB
     Indication: Colitis ulcerative
     Dosage: 300 MILLIGRAM
     Route: 042
     Dates: start: 20180904
  2. VEDOLIZUMAB [Suspect]
     Active Substance: VEDOLIZUMAB
     Dosage: 300 MILLIGRAM
     Route: 042
  3. VEDOLIZUMAB [Suspect]
     Active Substance: VEDOLIZUMAB
     Dosage: 300 MILLIGRAM
     Route: 042
  4. VEDOLIZUMAB [Suspect]
     Active Substance: VEDOLIZUMAB
     Dosage: 300 MILLIGRAM, Q4WEEKS
     Route: 042
     Dates: start: 20191112
  5. VEDOLIZUMAB [Suspect]
     Active Substance: VEDOLIZUMAB
     Dosage: 300 MILLIGRAM, Q4WEEKS
     Route: 042
  6. VEDOLIZUMAB [Suspect]
     Active Substance: VEDOLIZUMAB
     Dosage: 300 MILLIGRAM, Q4WEEKS
     Route: 042
  7. VEDOLIZUMAB [Suspect]
     Active Substance: VEDOLIZUMAB
     Dosage: 300 MILLIGRAM, Q4WEEKS
     Route: 042
  8. VEDOLIZUMAB [Suspect]
     Active Substance: VEDOLIZUMAB
     Dosage: 300 MILLIGRAM, Q4WEEKS
     Route: 042
  9. VEDOLIZUMAB [Suspect]
     Active Substance: VEDOLIZUMAB
     Dosage: 300 MILLIGRAM, Q4WEEKS
     Route: 042
  10. VEDOLIZUMAB [Suspect]
     Active Substance: VEDOLIZUMAB
     Dosage: 300 MILLIGRAM, Q4WEEKS
     Route: 042
  11. PANTOPRAZOLE MAGNESIUM [Suspect]
     Active Substance: PANTOPRAZOLE MAGNESIUM
     Indication: Product used for unknown indication
     Dosage: UNK
     Route: 065
  12. LYRICA [Concomitant]
     Active Substance: PREGABALIN
     Dosage: 25 MILLIGRAM, QD
  13. CLONAZEPAM [Concomitant]
     Active Substance: CLONAZEPAM
     Dosage: 0.5 MILLIGRAM, QID
     Route: 048
  14. CITALOPRAM [Concomitant]
     Active Substance: CITALOPRAM\CITALOPRAM HYDROBROMIDE
     Dosage: 40 MILLIGRAM
     Route: 048
  15. CANNABIDIOL [Concomitant]
     Active Substance: CANNABIDIOL
     Dosage: UNK
  16. CANNABIDIOL\HERBALS [Concomitant]
     Active Substance: CANNABIDIOL\HERBALS
     Dosage: UNK
  17. PANTOPRAZOLE SODIUM [Concomitant]
     Active Substance: PANTOPRAZOLE SODIUM
     Dosage: 40 MILLIGRAM
     Route: 048
  18. PERINDOPRIL [Concomitant]
     Active Substance: PERINDOPRIL
     Dosage: 4 MILLIGRAM
     Route: 048
  19. TRAZODONE [Concomitant]
     Active Substance: TRAZODONE HYDROCHLORIDE
     Dosage: 50 MILLIGRAM
     Route: 048
  20. PREGABALIN [Concomitant]
     Active Substance: PREGABALIN
     Dosage: 25 MILLIGRAM
     Route: 048

REACTIONS (7)
  - Pancreatitis chronic [Unknown]
  - Duodenitis [Unknown]
  - Colitis ulcerative [Unknown]
  - Frequent bowel movements [Unknown]
  - Therapeutic reaction time decreased [Unknown]
  - Off label use [Unknown]
  - Arthralgia [Not Recovered/Not Resolved]

NARRATIVE: CASE EVENT DATE: 20191112
